FAERS Safety Report 15114954 (Version 2)
Quarter: 2018Q3

REPORT INFORMATION
  Report Type: Spontaneous
  Country: FR (occurrence: FR)
  Receive Date: 20180706
  Receipt Date: 20180716
  Transmission Date: 20181010
  Serious: Yes (Death, Life-Threatening, Hospitalization, Other)
  Sender: FDA-Public Use
  Company Number: FR-MYLANLABS-2018M1049543

PATIENT
  Age: 59 Year
  Sex: Male

DRUGS (8)
  1. OXALIPLATIN. [Suspect]
     Active Substance: OXALIPLATIN
     Indication: MANTLE CELL LYMPHOMA STAGE III
     Dosage: UNK UNK, 4 CYCLE, CYCLIC (R?DHAO)
  2. MELPHALAN. [Concomitant]
     Active Substance: MELPHALAN
     Indication: MANTLE CELL LYMPHOMA STAGE III
     Dosage: 140 MG/M2, CYCLE, D?2 (BEAM)
  3. BICNU [Concomitant]
     Active Substance: CARMUSTINE
     Indication: MANTLE CELL LYMPHOMA STAGE III
     Dosage: 300 MG/M2, CYCLE, D?7 (BEAM)
  4. CYTARABINE. [Concomitant]
     Active Substance: CYTARABINE
     Indication: MANTLE CELL LYMPHOMA STAGE III
     Dosage: UNK, 4 CYCLE, CYCLIC (R?DHAO)
  5. RITUXIMAB. [Concomitant]
     Active Substance: RITUXIMAB
     Indication: MANTLE CELL LYMPHOMA STAGE III
     Dosage: UNK, 4 CYCLE, CYCLIC (R?DHAO)
  6. ETOPOPHOS [Concomitant]
     Active Substance: ETOPOSIDE PHOSPHATE
     Indication: MANTLE CELL LYMPHOMA STAGE III
     Dosage: 400 MG/M2, CYCLE, D?6 TO D?3 (BEAM)
  7. ARACYTINE [Concomitant]
     Active Substance: CYTARABINE
     Indication: MANTLE CELL LYMPHOMA STAGE III
     Dosage: 400 MG/M2, CYCLE, D?6 TO D?3 (BEAM)
  8. DEXAMETHASONE. [Concomitant]
     Active Substance: DEXAMETHASONE
     Indication: MANTLE CELL LYMPHOMA STAGE III
     Dosage: 4 CYCLIC (R?DHAO)

REACTIONS (6)
  - Hepatocellular injury [Fatal]
  - Intestinal ischaemia [Fatal]
  - Venoocclusive liver disease [Unknown]
  - Acute kidney injury [Fatal]
  - Arrhythmia [Fatal]
  - Multiple organ dysfunction syndrome [Fatal]
